FAERS Safety Report 6302233-6 (Version None)
Quarter: 2009Q3

REPORT INFORMATION
  Report Type: 
  Country: None (occurrence: None)
  Receive Date: 20090810
  Receipt Date: 20090731
  Transmission Date: 20100115
  Serious: Yes (Hospitalization)
  Sender: FDA-Public Use
  Company Number: US-BIOGENIDEC-2009BI024381

PATIENT
  Age: 36 Year
  Sex: Female

DRUGS (2)
  1. AVONEX [Suspect]
     Indication: MULTIPLE SCLEROSIS
     Route: 030
     Dates: start: 20020517, end: 20041101
  2. AVONEX [Suspect]
     Route: 030
     Dates: start: 20080327

REACTIONS (3)
  - CEREBROVASCULAR ACCIDENT [None]
  - HYPOTENSION [None]
  - MIGRAINE [None]
